FAERS Safety Report 5349940-X (Version None)
Quarter: 2007Q2

REPORT INFORMATION
  Report Type: 
  Country: None (occurrence: None)
  Receive Date: 20070607
  Receipt Date: 20070401
  Transmission Date: 20071010
  Serious: Yes (Death, Hospitalization)
  Sender: FDA-Public Use
  Company Number: BR-PFIZER INC-2007044237

PATIENT
  Sex: Female

DRUGS (1)
  1. SUTENT [Suspect]
     Route: 048

REACTIONS (2)
  - DEATH [None]
  - THROMBOCYTOPENIA [None]
